FAERS Safety Report 6893444-X (Version None)
Quarter: 2010Q3

REPORT INFORMATION
  Report Type: 
  Country: None (occurrence: None)
  Receive Date: 20100731
  Receipt Date: 20090914
  Transmission Date: 20110219
  Serious: No
  Sender: FDA-Public Use
  Company Number: US-PFIZER INC-2009237275

PATIENT
  Sex: Male

DRUGS (11)
  1. NEURONTIN [Suspect]
  2. NORVASC [Suspect]
  3. VALSARTAN [Suspect]
  4. COLCHICINE [Suspect]
  5. ALLEGRA [Suspect]
  6. SODIUM BICARBONATE [Suspect]
  7. ALLOPURINOL [Suspect]
  8. FINASTERIDE [Suspect]
  9. CALCIUM ACETATE [Suspect]
  10. ACETYLSALICYLIC ACID SRT [Suspect]
  11. FUROSEMIDE [Suspect]

REACTIONS (3)
  - GAIT DISTURBANCE [None]
  - VERTIGO [None]
  - VOMITING [None]
